FAERS Safety Report 6043423-X (Version None)
Quarter: 2009Q1

REPORT INFORMATION
  Report Type: 
  Country: None (occurrence: None)
  Receive Date: 20090115
  Receipt Date: 20090115
  Transmission Date: 20090719
  Serious: No
  Sender: FDA-Public Use
  Company Number: None

PATIENT
  Age: 71 Year
  Sex: Female
  Weight: 81.6475 kg

DRUGS (6)
  1. LEVAQUIN [Suspect]
     Indication: PNEUMONIA
     Dosage: 500MG Q24 IV
     Route: 042
     Dates: start: 20081113, end: 20081121
  2. FLAYL [Concomitant]
  3. PROTONIX [Concomitant]
  4. COMBIVENT [Concomitant]
  5. LASIX [Concomitant]
  6. SYNTHROID [Concomitant]

REACTIONS (1)
  - ANGIOEDEMA [None]
